FAERS Safety Report 22782287 (Version 3)
Quarter: 2023Q4

REPORT INFORMATION
  Report Type: Spontaneous
  Country: US (occurrence: US)
  Receive Date: 20230803
  Receipt Date: 20231218
  Transmission Date: 20240110
  Serious: Yes (Other)
  Sender: FDA-Public Use
  Company Number: US-002147023-NVSC2023US165801

PATIENT
  Sex: Male

DRUGS (1)
  1. XIIDRA [Suspect]
     Active Substance: LIFITEGRAST
     Indication: Product used for unknown indication
     Dosage: 5 % (EVERY 3 DAYS) (EYE)
     Route: 047

REACTIONS (4)
  - Blindness unilateral [Unknown]
  - Glaucoma [Unknown]
  - Eye irritation [Unknown]
  - Product use issue [Unknown]
